FAERS Safety Report 8862841 (Version 1)
Quarter: 2012Q4

REPORT INFORMATION
  Report Type: Report from Study
  Country: US (occurrence: US)
  Receive Date: 20121026
  Receipt Date: 20121026
  Transmission Date: 20130627
  Serious: Yes (Hospitalization)
  Sender: FDA-Public Use
  Company Number: US-GLAXOSMITHKLINE-A0998665A

PATIENT
  Age: 71 Year
  Sex: Male
  Weight: 57 kg

DRUGS (6)
  1. PAZOPANIB [Suspect]
     Indication: BLADDER CANCER
     Dosage: 800MG Per day
     Route: 048
     Dates: start: 20121004
  2. EVEROLIMUS [Suspect]
     Indication: BLADDER CANCER
     Dosage: 10MG Per day
     Route: 048
     Dates: start: 20121004
  3. METOCLOPRAMIDE [Concomitant]
     Route: 048
  4. ENOXAPARIN [Concomitant]
     Route: 058
  5. DEXAMETHASONE [Concomitant]
     Route: 048
  6. AMOXICILLIN + CLAVULANATE POTASSIUM [Concomitant]
     Route: 048

REACTIONS (4)
  - Hypotension [Unknown]
  - Dehydration [Unknown]
  - Pyelonephritis [Unknown]
  - Thrombocytopenia [Unknown]
